FAERS Safety Report 11394630 (Version 1)
Quarter: 2015Q3

REPORT INFORMATION
  Report Type: Spontaneous
  Country: US (occurrence: None)
  Receive Date: 20150817
  Receipt Date: 20150817
  Transmission Date: 20151125
  Serious: Yes (Other)
  Sender: FDA-Public Use
  Company Number: None

PATIENT
  Age: 23 Year
  Sex: Female
  Weight: 46.72 kg

DRUGS (1)
  1. PROACTIV 3 STEP ACNE TREATMENT [Suspect]
     Active Substance: BENZOYL PEROXIDE
     Indication: ACNE
     Dosage: 30 DAYS, APPLIED TO A SURFACE, USUALLY THE SKIN
     Route: 061
     Dates: start: 20150814, end: 20150814

REACTIONS (1)
  - Swelling face [None]

NARRATIVE: CASE EVENT DATE: 20150814
